FAERS Safety Report 18337154 (Version 5)
Quarter: 2021Q1

REPORT INFORMATION
  Report Type: Other
  Country: AT (occurrence: AT)
  Receive Date: 20201001
  Receipt Date: 20210309
  Transmission Date: 20210419
  Serious: Yes (Hospitalization)
  Sender: FDA-Public Use
  Company Number: AT-ROCHE-2688711

PATIENT
  Age: 62 Year
  Sex: Female
  Weight: 80 kg

DRUGS (74)
  1. TRASTUZUMAB EMTANSINE [Suspect]
     Active Substance: ADO-TRASTUZUMAB EMTANSINE
     Route: 042
     Dates: start: 20180515, end: 20180813
  2. HYDAL [Concomitant]
     Active Substance: HYDROMORPHONE HYDROCHLORIDE
     Indication: BACK PAIN
     Dosage: ONGOING = NOT CHECKED
     Dates: start: 20181227, end: 20190907
  3. AUGMENTIN [Concomitant]
     Active Substance: AMOXICILLIN\CLAVULANATE POTASSIUM
     Indication: RESPIRATORY TRACT INFECTION
     Dates: start: 20190509, end: 20190516
  4. CORTISON [Concomitant]
     Active Substance: CORTISONE ACETATE
     Indication: RESPIRATORY TRACT INFECTION
     Dosage: ONGOING = NOT CHECKED
     Dates: start: 20190615, end: 20190615
  5. BUPRENORPHINE. [Concomitant]
     Active Substance: BUPRENORPHINE
  6. LOVENOX [Concomitant]
     Active Substance: ENOXAPARIN SODIUM
     Dates: start: 20190312, end: 20190315
  7. FORTECORTIN [Concomitant]
     Active Substance: DEXAMETHASONE
     Dates: start: 20170829, end: 20180813
  8. PANTOLOC [Concomitant]
     Active Substance: PANTOPRAZOLE SODIUM
     Dates: start: 20170302
  9. ULSAL [Concomitant]
     Active Substance: RANITIDINE HYDROCHLORIDE
     Indication: CHILLS
     Dates: start: 20170306, end: 20170306
  10. DOXYCYCLIN [Concomitant]
     Active Substance: DOXYCYCLINE
     Indication: RESPIRATORY TRACT INFECTION
     Dates: start: 20190502, end: 20190509
  11. HYDAL [Concomitant]
     Active Substance: HYDROMORPHONE HYDROCHLORIDE
     Dates: start: 20180628, end: 20190226
  12. TRASTUZUMAB. [Suspect]
     Active Substance: TRASTUZUMAB
     Route: 058
     Dates: start: 20190527, end: 20190617
  13. NOVALGIN (AUSTRIA) [Concomitant]
     Indication: BACK PAIN
     Dosage: ONGOING = NOT CHECKED
     Dates: start: 20171212, end: 20190907
  14. FORTECORTIN [Concomitant]
     Active Substance: DEXAMETHASONE
     Dosage: ONGOING = NOT CHECKED
     Dates: start: 20190215, end: 20190907
  15. LASIX [Concomitant]
     Active Substance: FUROSEMIDE
     Dosage: ONGOING = NOT CHECKED
     Dates: end: 20190907
  16. LYRICA [Concomitant]
     Active Substance: PREGABALIN
     Indication: BACK PAIN
     Dosage: ONGOING = CHECKED
  17. SUCRALFAT [Concomitant]
     Active Substance: SUCRALFATE
     Dosage: ONGOING = NOT CHECKED
     Dates: end: 20190907
  18. BAMBEC [Concomitant]
     Active Substance: BAMBUTEROL HYDROCHLORIDE
  19. CLAVAMOX [Concomitant]
     Active Substance: AMOXICILLIN\CLAVULANATE POTASSIUM
     Indication: VASCULAR DEVICE INFECTION
     Dates: start: 20180215, end: 20180215
  20. LOVENOX [Concomitant]
     Active Substance: ENOXAPARIN SODIUM
     Dates: start: 20180126, end: 20180208
  21. PASPERTIN [Concomitant]
     Dates: start: 20171212, end: 20190907
  22. ULSAL [Concomitant]
     Active Substance: RANITIDINE HYDROCHLORIDE
     Dates: start: 20170327, end: 20180813
  23. NOVALGIN (AUSTRIA) [Concomitant]
     Dates: start: 20190509, end: 20190509
  24. TEMESTA [Concomitant]
     Dates: start: 20190226
  25. CAPECITABINE. [Suspect]
     Active Substance: CAPECITABINE
     Route: 048
     Dates: start: 20190527, end: 201906
  26. LAPATINIB [Suspect]
     Active Substance: LAPATINIB
     Indication: HER2 POSITIVE BREAST CANCER
     Dosage: MOST RECENT DOSE ON 16/JAN/2019
     Route: 048
     Dates: start: 20181227
  27. VENLAFAB [Concomitant]
     Active Substance: VENLAFAXINE HYDROCHLORIDE
     Dosage: ONGOING = NOT CHECKED
     Dates: start: 20190315, end: 20190907
  28. CONCOR COR [Concomitant]
     Active Substance: BISOPROLOL FUMARATE
     Dosage: ONGOING = CHECKED
     Dates: end: 20190907
  29. KYTRIL [Concomitant]
     Active Substance: GRANISETRON HYDROCHLORIDE
     Dates: start: 20171212, end: 20180813
  30. FORTECORTIN [Concomitant]
     Active Substance: DEXAMETHASONE
     Dosage: ONGOING = CHECKED
     Dates: start: 20190215, end: 20190907
  31. HYDAL [Concomitant]
     Active Substance: HYDROMORPHONE HYDROCHLORIDE
     Indication: BACK PAIN
     Dates: start: 20181227, end: 20190907
  32. FENISTIL [Concomitant]
     Active Substance: DIMETHINDENE
     Indication: CHILLS
     Dates: start: 20170306, end: 20170306
  33. CAPECITABINE. [Suspect]
     Active Substance: CAPECITABINE
     Indication: HER2 POSITIVE BREAST CANCER
     Route: 048
     Dates: start: 20180904, end: 20180910
  34. VINORELBINE [Suspect]
     Active Substance: VINORELBINE TARTRATE
     Indication: HER2 POSITIVE BREAST CANCER
     Route: 048
     Dates: start: 20170306, end: 20170530
  35. MIRTAZAPIN [Concomitant]
     Active Substance: MIRTAZAPINE
     Dosage: ONGOING = NOT CHECKED
     Dates: start: 20190315, end: 20190907
  36. PARACODIN [Concomitant]
     Indication: COUGH
     Dates: start: 20171212, end: 20180115
  37. NOVALGIN (AUSTRIA) [Concomitant]
     Indication: BACK PAIN
     Dates: start: 20171212, end: 20190907
  38. CAPECITABINE. [Suspect]
     Active Substance: CAPECITABINE
     Route: 048
     Dates: start: 20190617, end: 201909
  39. LAPATINIB [Suspect]
     Active Substance: LAPATINIB
     Route: 048
     Dates: start: 20190116, end: 20190206
  40. TRASTUZUMAB. [Suspect]
     Active Substance: TRASTUZUMAB
     Indication: HER2 POSITIVE BREAST CANCER
     Route: 058
     Dates: start: 20180904, end: 20180904
  41. TRASTUZUMAB. [Suspect]
     Active Substance: TRASTUZUMAB
     Route: 058
     Dates: start: 20181023, end: 20190226
  42. PANTOLOC [Concomitant]
     Active Substance: PANTOPRAZOLE SODIUM
     Dosage: ONGOING = CHECKED
     Dates: start: 20170302
  43. EMEND [Concomitant]
     Active Substance: APREPITANT
     Dates: start: 20180127, end: 20180815
  44. DEXAMETHASON [Concomitant]
     Active Substance: DEXAMETHASONE
     Dates: start: 20170829, end: 20180813
  45. HYDAL [Concomitant]
     Active Substance: HYDROMORPHONE HYDROCHLORIDE
     Dates: start: 20180403, end: 20180628
  46. PASPERTIN [Concomitant]
     Dosage: ONGOING = NOT CHECKED
     Dates: start: 20171212, end: 20190907
  47. TEMESTA [Concomitant]
     Dosage: ONGOING = CHECKED
     Dates: start: 20190226
  48. KALIORAL (AUSTRIA) [Concomitant]
  49. ZYRTEC (AUSTRIA) [Concomitant]
     Indication: PRURITUS
     Dates: start: 20170327, end: 20171215
  50. TRITTICO [Concomitant]
     Active Substance: TRAZODONE HYDROCHLORIDE
  51. MIRTAZAPIN [Concomitant]
     Active Substance: MIRTAZAPINE
     Dosage: ONGOING = CHECKED
     Dates: start: 20190315, end: 20190907
  52. VENLAFAB [Concomitant]
     Active Substance: VENLAFAXINE HYDROCHLORIDE
     Dates: start: 20190315, end: 20190907
  53. NOVALGIN (AUSTRIA) [Concomitant]
     Indication: HEPATIC PAIN
     Dosage: ONGOING = CHECKED
     Dates: start: 20170327, end: 20191003
  54. NOVALGIN (AUSTRIA) [Concomitant]
     Indication: RESPIRATORY TRACT INFECTION
     Dates: start: 20190615, end: 20190615
  55. PERTUZUMAB. [Suspect]
     Active Substance: PERTUZUMAB
     Indication: HER2 POSITIVE BREAST CANCER
     Dosage: MOST RECENT DOSE ON 21/NOV/2017
     Route: 042
     Dates: start: 20170306
  56. DAFLON [Concomitant]
     Dates: end: 20190907
  57. LIXIANA [Concomitant]
     Active Substance: EDOXABAN TOSYLATE
     Indication: PULMONARY EMBOLISM
     Dates: start: 20190315, end: 20190907
  58. LASIX [Concomitant]
     Active Substance: FUROSEMIDE
     Dates: end: 20190907
  59. MEXALEN [Concomitant]
     Active Substance: ACETAMINOPHEN
     Dates: start: 20170327, end: 20170327
  60. NOVALGIN (AUSTRIA) [Concomitant]
     Indication: BACK PAIN
     Dosage: ONGOING = CHECKED
     Dates: start: 20190315, end: 20190907
  61. TRASTUZUMAB. [Suspect]
     Active Substance: TRASTUZUMAB
     Indication: HER2 POSITIVE BREAST CANCER
     Dosage: MOST RECENT DOSE: 21/NOV/2017
     Route: 042
     Dates: start: 20170306
  62. TRASTUZUMAB EMTANSINE [Suspect]
     Active Substance: ADO-TRASTUZUMAB EMTANSINE
     Indication: HER2 POSITIVE BREAST CANCER
     Route: 042
     Dates: start: 20171212, end: 20180424
  63. VINORELBINE [Suspect]
     Active Substance: VINORELBINE TARTRATE
     Route: 048
     Dates: start: 20170627, end: 20170718
  64. TRASTUZUMAB. [Suspect]
     Active Substance: TRASTUZUMAB
     Route: 058
     Dates: start: 20200507, end: 20200507
  65. LAEVOLAC [Concomitant]
     Active Substance: LACTULOSE
     Dates: start: 20171212, end: 20190907
  66. NOVALGIN (AUSTRIA) [Concomitant]
     Indication: BACK PAIN
     Dosage: ONGOING = NOT CHECKED
     Dates: start: 20190315, end: 20190907
  67. NOVALGIN (AUSTRIA) [Concomitant]
     Indication: HEPATIC PAIN
     Dosage: ONGOING = NOT CHECKED
     Dates: start: 20170327, end: 20191003
  68. LIXIANA [Concomitant]
     Active Substance: EDOXABAN TOSYLATE
     Indication: PULMONARY EMBOLISM
     Dosage: ONGOING = NOT CHECKED
     Dates: start: 20190315, end: 20190907
  69. FORTECORTIN [Concomitant]
     Active Substance: DEXAMETHASONE
     Dates: start: 20180127, end: 20180313
  70. LYRICA [Concomitant]
     Active Substance: PREGABALIN
     Indication: BACK PAIN
     Dates: start: 20181227, end: 20190226
  71. ZOLPIDEM [Concomitant]
     Active Substance: ZOLPIDEM TARTRATE
     Dates: start: 20190215, end: 20190315
  72. PARACODIN [Concomitant]
     Dates: start: 20190510
  73. FENISTIL [Concomitant]
     Active Substance: DIMETHINDENE
     Dates: start: 20170327, end: 20180313
  74. SOLU?DACORTIN [Concomitant]
     Active Substance: PREDNISOLONE SODIUM SUCCINATE
     Indication: CHILLS
     Dates: start: 20170306, end: 20170306

REACTIONS (2)
  - Dyspnoea [Not Recovered/Not Resolved]
  - Respiratory tract infection [Recovered/Resolved]

NARRATIVE: CASE EVENT DATE: 20190415
